FAERS Safety Report 24969642 (Version 2)
Quarter: 2025Q1

REPORT INFORMATION
  Report Type: Report from Study
  Country: CA (occurrence: CA)
  Receive Date: 20250214
  Receipt Date: 20250325
  Transmission Date: 20250409
  Serious: Yes (Other)
  Sender: ACCORD
  Company Number: None

PATIENT
  Age: 68 Year
  Sex: Female

DRUGS (2)
  1. MONTELUKAST [Suspect]
     Active Substance: MONTELUKAST
     Indication: Product used for unknown indication
  2. OMALIZUMAB [Suspect]
     Active Substance: OMALIZUMAB
     Indication: Chronic spontaneous urticaria
     Route: 058

REACTIONS (12)
  - Anaphylactic reaction [Unknown]
  - Autoimmune disorder [Unknown]
  - Sinusitis [Unknown]
  - Cough [Unknown]
  - Lip swelling [Unknown]
  - Mouth swelling [Unknown]
  - Oropharyngeal pain [Unknown]
  - Urticaria [Unknown]
  - Mouth ulceration [Unknown]
  - Oral pain [Unknown]
  - Symptom recurrence [Unknown]
  - Treatment failure [Unknown]
